FAERS Safety Report 8242164-8 (Version None)
Quarter: 2012Q1

REPORT INFORMATION
  Report Type: 
  Country: None (occurrence: None)
  Receive Date: 20120314
  Receipt Date: 20110510
  Transmission Date: 20120608
  Serious: No
  Sender: FDA-Public Use
  Company Number: PHHY2011US39733

PATIENT
  Sex: Male

DRUGS (4)
  1. ZYPREXA [Concomitant]
  2. FANAPT [Suspect]
     Dosage: UNK, ORAL
     Route: 048
  3. ZYPREXA ZYDIS [Concomitant]
  4. RELPREVV [Concomitant]

REACTIONS (1)
  - DROOLING [None]
